FAERS Safety Report 14694108 (Version 2)
Quarter: 2018Q2

REPORT INFORMATION
  Report Type: Spontaneous
  Country: LU (occurrence: LU)
  Receive Date: 20180329
  Receipt Date: 20180404
  Transmission Date: 20180711
  Serious: Yes (Hospitalization)
  Sender: FDA-Public Use
  Company Number: LU-BAYER-2018-027239

PATIENT
  Sex: Male

DRUGS (1)
  1. CIPROXINE 500 MG [Suspect]
     Active Substance: CIPROFLOXACIN
     Indication: PROSTATIC SPECIFIC ANTIGEN INCREASED
     Dosage: UNK

REACTIONS (8)
  - Chest pain [None]
  - Inflammation [None]
  - Off label use [None]
  - Fatigue [None]
  - Pain [None]
  - Muscle disorder [None]
  - Drug ineffective for unapproved indication [None]
  - Malaise [None]
